FAERS Safety Report 6578930-4 (Version None)
Quarter: 2010Q1

REPORT INFORMATION
  Report Type: 
  Country: None (occurrence: None)
  Receive Date: 20100212
  Receipt Date: 20100205
  Transmission Date: 20100710
  Serious: Yes (Other)
  Sender: FDA-Public Use
  Company Number: US-RB-002475-10

PATIENT
  Age: 23 Year
  Sex: Female

DRUGS (2)
  1. MUCINEX DM [Suspect]
     Dosage: TOOK 1 TABLET ONLY
     Route: 048
     Dates: start: 20100205
  2. CLOTRIMAZOLE [Concomitant]

REACTIONS (5)
  - DIARRHOEA [None]
  - DYSPNOEA [None]
  - FEELING HOT [None]
  - PHARYNGEAL OEDEMA [None]
  - VOMITING [None]
